APPROVED DRUG PRODUCT: VANCOMYCIN HYDROCHLORIDE
Active Ingredient: VANCOMYCIN HYDROCHLORIDE
Strength: EQ 750MG BASE/VIAL
Dosage Form/Route: INJECTABLE;INJECTION
Application: A062663 | Product #005 | TE Code: AP
Applicant: FRESENIUS KABI USA LLC
Approved: Aug 17, 2016 | RLD: No | RS: No | Type: RX